FAERS Safety Report 16296744 (Version 1)
Quarter: 2019Q2

REPORT INFORMATION
  Report Type: Spontaneous
  Country: IT (occurrence: IT)
  Receive Date: 20190510
  Receipt Date: 20190510
  Transmission Date: 20190711
  Serious: Yes (Hospitalization)
  Sender: FDA-Public Use
  Company Number: IT-PFIZER INC-2019197089

PATIENT
  Age: 63 Year
  Sex: Male

DRUGS (7)
  1. ESKIM [Concomitant]
     Active Substance: OMEGA-3 FATTY ACIDS
     Dosage: UNK UNK, UNK
  2. LASIX [Concomitant]
     Active Substance: FUROSEMIDE
     Dosage: UNK UNK, UNK
  3. BRILIQUE [Concomitant]
     Active Substance: TICAGRELOR
     Dosage: UNK UNK, UNK
  4. LUVION [CANRENOIC ACID] [Concomitant]
     Active Substance: CANRENOIC ACID
     Dosage: UNK UNK, UNK
  5. CARDICOR [Suspect]
     Active Substance: BISOPROLOL
     Indication: CARDIAC FAILURE
     Dosage: 3.75 MG, QD
     Route: 048
     Dates: start: 20181130
  6. CORDARONE [Suspect]
     Active Substance: AMIODARONE HYDROCHLORIDE
     Indication: ATRIAL FIBRILLATION
     Dosage: 200 MG, QOD
     Route: 048
     Dates: start: 20190102
  7. CARDIOASPIRIN [Concomitant]
     Active Substance: ASPIRIN
     Dosage: UNK UNK, UNK

REACTIONS (3)
  - Tachycardia [Recovering/Resolving]
  - Chest pain [Recovering/Resolving]
  - Therapy non-responder [Unknown]

NARRATIVE: CASE EVENT DATE: 20190109
